FAERS Safety Report 7496833-8 (Version None)
Quarter: 2011Q2

REPORT INFORMATION
  Report Type: 
  Country: None (occurrence: None)
  Receive Date: 20110523
  Receipt Date: 20110504
  Transmission Date: 20111010
  Serious: No
  Sender: FDA-Public Use
  Company Number: US-B.I. PHARMACEUTICALS,INC./RIDGEFIELD-2011-BP-08562BP

PATIENT
  Sex: Female

DRUGS (9)
  1. VITAMIN D [Concomitant]
     Dosage: 1000 U
  2. ASPIRIN [Concomitant]
     Dosage: 81 MG
  3. ROPINIROLE [Concomitant]
  4. OMEPRAZOLE [Concomitant]
  5. PRADAXA [Suspect]
     Indication: ATRIAL FIBRILLATION
     Dosage: 300 MG
     Route: 048
     Dates: start: 20110308
  6. LEXAPRO [Concomitant]
     Dosage: 10 MG
  7. OSCAL + D3 [Concomitant]
     Dosage: 1000 MG
  8. LYRICA [Concomitant]
     Dosage: 100 MG
  9. PRADAXA [Suspect]
     Indication: BLOOD DISORDER

REACTIONS (1)
  - DIZZINESS POSTURAL [None]
